FAERS Safety Report 16118487 (Version 1)
Quarter: 2019Q1

REPORT INFORMATION
  Report Type: Spontaneous
  Country: DE (occurrence: DE)
  Receive Date: 20190326
  Receipt Date: 20190326
  Transmission Date: 20190418
  Serious: Yes (Life-Threatening, Hospitalization)
  Sender: FDA-Public Use
  Company Number: DE-DENTSPLY-2019SCDP000163

PATIENT
  Age: 31 Year
  Sex: Female

DRUGS (2)
  1. MEPIVACAINE HCL AND EPINEPHRINE [Suspect]
     Active Substance: EPINEPHRINE\MEPIVACAINE HYDROCHLORIDE
     Indication: LOCAL ANAESTHESIA
     Dosage: SOLUTION FOR INJECTION,33, A SMALL QUANTITY
     Route: 004
  2. VENLAFAXINE [Concomitant]
     Active Substance: VENLAFAXINE HYDROCHLORIDE
     Indication: PRODUCT USED FOR UNKNOWN INDICATION
     Dosage: UNK

REACTIONS (5)
  - Cardiogenic shock [Recovered/Resolved]
  - Ventricular fibrillation [Recovered/Resolved]
  - Retrograde amnesia [Recovered/Resolved]
  - Stress cardiomyopathy [Recovered/Resolved]
  - Reactive psychosis [Recovered/Resolved]
